FAERS Safety Report 6707562-X (Version None)
Quarter: 2010Q2

REPORT INFORMATION
  Report Type: 
  Country: None (occurrence: None)
  Receive Date: 20100503
  Receipt Date: 20100429
  Transmission Date: 20101027
  Serious: Yes (Life-Threatening)
  Sender: FDA-Public Use
  Company Number: GR-MYLANLABS-2010S1006577

PATIENT
  Age: 55 Year
  Sex: Female
  Weight: 70 kg

DRUGS (4)
  1. EPIRUBICIN [Suspect]
     Indication: BREAST CANCER
     Route: 042
     Dates: start: 20100407, end: 20100407
  2. ONDANSETRON [Suspect]
     Indication: BREAST CANCER
     Route: 048
     Dates: start: 20100407, end: 20100409
  3. ENDOXAN [Suspect]
     Indication: BREAST CANCER
     Route: 042
     Dates: start: 20100407
  4. FLUOROURACIL [Suspect]
     Indication: BREAST CANCER
     Route: 042

REACTIONS (1)
  - NEUTROPENIA [None]
